FAERS Safety Report 21065979 (Version 7)
Quarter: 2023Q4

REPORT INFORMATION
  Report Type: Spontaneous
  Country: US (occurrence: US)
  Receive Date: 20220711
  Receipt Date: 20231219
  Transmission Date: 20240109
  Serious: No
  Sender: FDA-Public Use
  Company Number: US-PFIZER INC-202200935373

PATIENT
  Age: 69 Year
  Sex: Female
  Weight: 78.02 kg

DRUGS (8)
  1. IBRANCE [Suspect]
     Active Substance: PALBOCICLIB
     Indication: Breast cancer metastatic
     Dosage: 125 MG, ONCE DAILY FOR 3 WEEKS ON AND THEN 1 WEEK OFF. REPEAT CYCLE
     Route: 048
     Dates: start: 20220624
  2. SIMVASTATIN [Concomitant]
     Active Substance: SIMVASTATIN
     Indication: Blood cholesterol abnormal
     Dosage: 20 MG, 1X/DAY
     Dates: start: 2012
  3. NORVASC [Concomitant]
     Active Substance: AMLODIPINE BESYLATE
     Indication: Hypertension
     Dosage: 5 MG, 1X/DAY
     Route: 048
     Dates: start: 2017
  4. NORVASC [Concomitant]
     Active Substance: AMLODIPINE BESYLATE
     Dosage: 1.5 DF, 1X/DAY
     Route: 048
  5. FULVESTRANT [Concomitant]
     Active Substance: FULVESTRANT
     Dosage: UNK
     Dates: start: 20220608
  6. XANAX [Concomitant]
     Active Substance: ALPRAZOLAM
     Indication: Insomnia
     Dosage: 0.25 MG, EVERY NIGHT AS NEEDED
     Route: 048
  7. NEURONTIN [Concomitant]
     Active Substance: GABAPENTIN
     Dosage: 1 CAPSULES THREE TIMES A DAY (FOR ONE WEEK)
     Route: 048
  8. NEURONTIN [Concomitant]
     Active Substance: GABAPENTIN
     Dosage: 3 CAPSULES THREE TIMES A DAY (FOR ONE WEEK)
     Route: 048

REACTIONS (4)
  - Joint swelling [Recovered/Resolved]
  - Fatigue [Not Recovered/Not Resolved]
  - Rash macular [Unknown]
  - Condition aggravated [Unknown]

NARRATIVE: CASE EVENT DATE: 20220101
